FAERS Safety Report 6454763-4 (Version None)
Quarter: 2009Q4

REPORT INFORMATION
  Report Type: 
  Country: None (occurrence: None)
  Receive Date: 20091124
  Receipt Date: 20091112
  Transmission Date: 20100525
  Serious: Yes (Hospitalization)
  Sender: FDA-Public Use
  Company Number: NL-ELI_LILLY_AND_COMPANY-NL200911003409

PATIENT
  Sex: Male

DRUGS (2)
  1. PEMETREXED [Suspect]
     Indication: NON-SMALL CELL LUNG CANCER
     Dosage: 4200 MG, EVERY 3 WEEKS
     Route: 042
     Dates: start: 20090826
  2. CISPLATIN [Suspect]
     Indication: NON-SMALL CELL LUNG CANCER
     Dosage: 624 MG, EVERY 3 WEEKS
     Route: 042
     Dates: start: 20090826

REACTIONS (5)
  - CYSTITIS [None]
  - FATIGUE [None]
  - HEADACHE [None]
  - MALAISE [None]
  - PYREXIA [None]
